FAERS Safety Report 6873552-X (Version None)
Quarter: 2010Q3

REPORT INFORMATION
  Report Type: 
  Country: None (occurrence: None)
  Receive Date: 20100723
  Receipt Date: 20090223
  Transmission Date: 20110219
  Serious: No
  Sender: FDA-Public Use
  Company Number: US-PFIZER INC-2009167039

PATIENT
  Sex: Male
  Weight: 113.38 kg

DRUGS (4)
  1. CHANTIX [Suspect]
     Indication: SMOKING CESSATION THERAPY
     Dosage: UNK
     Dates: start: 20081205, end: 20090120
  2. CRESTOR [Concomitant]
     Dosage: 10 MG, UNK
  3. LISINOPRIL [Concomitant]
     Dosage: 5 MG, UNK
  4. BUSPAR [Concomitant]
     Dosage: UNK
     Dates: start: 20090130

REACTIONS (6)
  - ANXIETY [None]
  - HYPERHIDROSIS [None]
  - IMPAIRED WORK ABILITY [None]
  - IMPULSE-CONTROL DISORDER [None]
  - NAUSEA [None]
  - PSYCHOMOTOR HYPERACTIVITY [None]
